FAERS Safety Report 8345185-X (Version None)
Quarter: 2012Q2

REPORT INFORMATION
  Report Type: 
  Country: None (occurrence: None)
  Receive Date: 20120508
  Receipt Date: 20120424
  Transmission Date: 20120825
  Serious: Yes (Hospitalization)
  Sender: FDA-Public Use
  Company Number: US-BAYER-2012-044579

PATIENT
  Sex: Female

DRUGS (7)
  1. COUMADIN [Suspect]
     Indication: PRODUCT USED FOR UNKNOWN INDICATION
     Route: 065
  2. GABAPENTIN [Concomitant]
  3. NAPROXEN SODIUM [Suspect]
     Indication: PRODUCT USED FOR UNKNOWN INDICATION
     Dosage: UNK
     Route: 065
     Dates: start: 20120101
  4. INTERFERON BETA NOS [Concomitant]
  5. OXYCODONE HCL [Concomitant]
  6. REBIF [Concomitant]
  7. REQUIP [Concomitant]

REACTIONS (1)
  - GASTROINTESTINAL ULCER HAEMORRHAGE [None]
